FAERS Safety Report 13257814 (Version 1)
Quarter: 2017Q1

REPORT INFORMATION
  Report Type: Spontaneous
  Country: IL (occurrence: IL)
  Receive Date: 20170221
  Receipt Date: 20170221
  Transmission Date: 20170428
  Serious: Yes (Life-Threatening, Hospitalization, Other)
  Sender: FDA-Public Use
  Company Number: IL-GLAXOSMITHKLINE-IL2017GSK022510

PATIENT
  Age: 14 Year
  Sex: Female

DRUGS (2)
  1. BUCCOLAM [Concomitant]
     Active Substance: MIDAZOLAM HYDROCHLORIDE
  2. LAMICTAL [Suspect]
     Active Substance: LAMOTRIGINE
     Indication: PRODUCT USED FOR UNKNOWN INDICATION
     Route: 048

REACTIONS (4)
  - Drug reaction with eosinophilia and systemic symptoms [Unknown]
  - Lymphadenopathy [Unknown]
  - Pyrexia [Unknown]
  - Rash [Not Recovered/Not Resolved]
